FAERS Safety Report 22592169 (Version 2)
Quarter: 2024Q1

REPORT INFORMATION
  Report Type: Spontaneous
  Country: US (occurrence: US)
  Receive Date: 20230613
  Receipt Date: 20240328
  Transmission Date: 20240409
  Serious: Yes (Hospitalization)
  Sender: FDA-Public Use
  Company Number: US-ABBVIE-5285039

PATIENT
  Sex: Female

DRUGS (5)
  1. LINZESS [Suspect]
     Active Substance: LINACLOTIDE
     Indication: Product used for unknown indication
     Route: 048
  2. GATTEX [Suspect]
     Active Substance: TEDUGLUTIDE\WATER
     Indication: Short-bowel syndrome
     Dosage: DRUG END DATE OCT 2022
     Route: 058
     Dates: start: 20221013
  3. GATTEX [Suspect]
     Active Substance: TEDUGLUTIDE\WATER
     Indication: Short-bowel syndrome
     Dosage: FIRST ADMIN DATE; OCT 2022
     Route: 058
  4. GATTEX [Suspect]
     Active Substance: TEDUGLUTIDE\WATER
     Indication: Short-bowel syndrome
     Dosage: DRUG END DATE 2022
     Route: 058
     Dates: start: 20221021
  5. GATTEX [Suspect]
     Active Substance: TEDUGLUTIDE\WATER
     Indication: Short-bowel syndrome
     Route: 058
     Dates: start: 20221112

REACTIONS (14)
  - Pancreatic enzymes increased [Unknown]
  - Constipation [Unknown]
  - Blood cholesterol increased [Unknown]
  - Weight increased [Unknown]
  - Nausea [Unknown]
  - Swelling face [Not Recovered/Not Resolved]
  - Stomal hernia [Unknown]
  - Blood potassium decreased [Unknown]
  - Headache [Unknown]
  - Abdominal hernia [Unknown]
  - Unevaluable event [Unknown]
  - Influenza [Unknown]
  - Abdominal pain upper [Unknown]
  - Peripheral swelling [Not Recovered/Not Resolved]
